FAERS Safety Report 22077203 (Version 1)
Quarter: 2023Q1

REPORT INFORMATION
  Report Type: Spontaneous
  Country: NL (occurrence: NL)
  Receive Date: 20230309
  Receipt Date: 20230309
  Transmission Date: 20230417
  Serious: Yes (Other)
  Sender: FDA-Public Use
  Company Number: None

PATIENT
  Sex: Male
  Weight: 135 kg

DRUGS (12)
  1. METOPROLOL [Suspect]
     Active Substance: METOPROLOL
     Indication: Hypertension
     Dosage: 100 MILLIGRAM DAILY; 1X PER DAY 1 PIECE, METOPROLOL TABLET  100MG / BRAND NAME NOT SPECIFIED
     Route: 065
     Dates: start: 20120305
  2. SPIRONOLACTONE [Concomitant]
     Active Substance: SPIRONOLACTONE
     Indication: Product used for unknown indication
     Dosage: 25 MG (MILLIGRAM), SPIRONOLACTON TABLET 25MG / BRAND NAME NOT SPECIFIED
     Route: 065
  3. LANSOPRAZOLE [Concomitant]
     Active Substance: LANSOPRAZOLE
     Indication: Product used for unknown indication
     Dosage: 15 MG (MILLIGRAM), LANSOPRAZOL CAPSULE MSR 15MG / BRAND NAME NOT SPECIFIED
     Route: 065
  4. INSULINE LISPRO [Concomitant]
     Indication: Product used for unknown indication
     Dosage: INJECTION FLUID, 100 UNITS/ML (UNITS PER MILLILITER),  INSULINE LISPRO 100E/ML INJVLST / BRAND NAME
     Route: 065
  5. BUMETANIDE [Concomitant]
     Active Substance: BUMETANIDE
     Indication: Product used for unknown indication
     Dosage: TABLET, 1 MG (MILLIGRAM), BUMETANIDE TABLET 1MG / BRAND NAME NOT SPECIFIED
     Route: 065
  6. EZETIMIBE [Concomitant]
     Active Substance: EZETIMIBE
     Indication: Product used for unknown indication
     Dosage: 10 MG (MILLIGRAM), EZETIMIB TABLET 10MG / BRAND NAME NOT SPECIFIED
     Route: 065
  7. METOPROLOL [Concomitant]
     Active Substance: METOPROLOL
     Indication: Product used for unknown indication
     Dosage: 50 MG (MILLIGRAMS), METOPROLOL TABLET MGA  50MG (SUCCINAAT) / BRAND NAME NOT SPECIFIED
     Route: 065
  8. METFORMIN HYDROCHLORIDE [Concomitant]
     Active Substance: METFORMIN HYDROCHLORIDE
     Indication: Product used for unknown indication
     Dosage: 1000 MG (MILLIGRAM), METFORMINE TABLET MGA 1000MG / BRAND NAME NOT SPECIFIED,
     Route: 065
  9. LISINOPRIL [Concomitant]
     Active Substance: LISINOPRIL
     Indication: Product used for unknown indication
     Dosage: 5 MG (MILLIGRAM), LISINOPRIL TABLET  5MG / BRAND NAME NOT SPECIFIED
     Route: 065
  10. PAROXETINE [Concomitant]
     Active Substance: PAROXETINE
     Indication: Product used for unknown indication
     Dosage: TABLET, 20 MG (MILLIGRAM), PAROXETINE TABLET 20MG / BRAND NAME NOT SPECIFIED
     Route: 065
  11. ASPIRIN [Concomitant]
     Active Substance: ASPIRIN
     Indication: Product used for unknown indication
     Dosage: 80 MG (MILLIGRAM), ACETYLSALICYLIC ACID TABLET 80MG / BRAND NAME NOT SPECIFIED
     Route: 065
  12. ATORVASTATIN [Concomitant]
     Active Substance: ATORVASTATIN
     Indication: Product used for unknown indication
     Dosage: 40 MG (MILLIGRAM), ATORVASTATINE TABLET 40MG / BRAND NAME NOT SPECIFIED
     Route: 065

REACTIONS (2)
  - Pulmonary oedema [Recovered/Resolved]
  - Dyspnoea [Unknown]
